FAERS Safety Report 5343247-2 (Version None)
Quarter: 2007Q2

REPORT INFORMATION
  Report Type: 
  Country: None (occurrence: None)
  Receive Date: 20070416
  Receipt Date: 20070209
  Transmission Date: 20071010
  Serious: No
  Sender: FDA-Public Use
  Company Number: 2007SP000461

PATIENT
  Age: 59 Year
  Sex: Female
  Weight: 52.1637 kg

DRUGS (4)
  1. LUNESTA [Suspect]
     Indication: INSOMNIA
     Dosage: 3 MG; PRN; ORAL
     Route: 048
     Dates: start: 20061101
  2. TENORMIN [Concomitant]
  3. MULTIVITAMIN [Concomitant]
  4. AMBIEN [Concomitant]

REACTIONS (4)
  - CONJUNCTIVITIS [None]
  - DRY EYE [None]
  - HEADACHE [None]
  - VISION BLURRED [None]
